FAERS Safety Report 7105772-3 (Version None)
Quarter: 2010Q4

REPORT INFORMATION
  Report Type: 
  Country: None (occurrence: None)
  Receive Date: 20101110
  Receipt Date: 20101103
  Transmission Date: 20110411
  Serious: Yes (Hospitalization)
  Sender: FDA-Public Use
  Company Number: CIP10002672

PATIENT
  Age: 63 Year
  Sex: Female

DRUGS (10)
  1. ACTONEL [Suspect]
     Dosage: 150 MG ONCE MONTHLY, ORAL
     Route: 048
     Dates: start: 20101001
  2. PREMARIN [Concomitant]
  3. LIPITOR [Concomitant]
  4. CLARINEX /01398501/ (DESLORATADINE) [Concomitant]
  5. CALCIUM (CALCIUM) [Concomitant]
  6. FOLIC ACID [Concomitant]
  7. VITAMINS NOS (VITAMINS NOS) [Concomitant]
  8. FISH OIL (FISH OIL) [Concomitant]
  9. LINUM USITATISSIMUM SEED (LINUM USITATISSIMUM SEED) [Concomitant]
  10. MIRALAX [Concomitant]

REACTIONS (7)
  - DEHYDRATION [None]
  - DIARRHOEA [None]
  - DYSPEPSIA [None]
  - LOSS OF CONSCIOUSNESS [None]
  - MALAISE [None]
  - PRESYNCOPE [None]
  - VOMITING [None]
